FAERS Safety Report 13571439 (Version 5)
Quarter: 2017Q4

REPORT INFORMATION
  Report Type: Spontaneous
  Country: US (occurrence: US)
  Receive Date: 20170523
  Receipt Date: 20171115
  Transmission Date: 20180320
  Serious: Yes (Hospitalization)
  Sender: FDA-Public Use
  Company Number: US-PFIZER INC-2017219791

PATIENT
  Age: 64 Year
  Sex: Female
  Weight: 53.52 kg

DRUGS (17)
  1. TRANXENE [Concomitant]
     Active Substance: CLORAZEPATE DIPOTASSIUM
     Dosage: UNK
     Dates: start: 2007
  2. TRANXENE T-TAB [Concomitant]
     Active Substance: CLORAZEPATE DIPOTASSIUM
     Dosage: 0.50 DF, 1X/DAY (EVERY NIGHT)
     Route: 048
  3. ZOFRAN [Concomitant]
     Active Substance: ONDANSETRON HYDROCHLORIDE
     Dosage: 4 MG, 3X/DAY (EVERY 8 HOURS)
  4. WARFARIN SODIUM. [Concomitant]
     Active Substance: WARFARIN SODIUM
     Dosage: 5 MG, ALTERNATE DAY[TAKE 1 TABLET BY MOUTH]
     Route: 048
  5. WARFARIN [Concomitant]
     Active Substance: WARFARIN
     Indication: THROMBOSIS
     Dosage: 0.5 MG, ALTERNATE DAY[0.50 TABLET ON]
     Dates: start: 20170509
  6. AMBIEN [Concomitant]
     Active Substance: ZOLPIDEM TARTRATE
     Indication: SLEEP DISORDER
     Dosage: UNK, 1X/DAY (HALF OF THE PILL AT NIGHT)
     Dates: start: 2007
  7. GABAPENTIN. [Concomitant]
     Active Substance: GABAPENTIN
     Indication: PROPHYLAXIS OF NAUSEA AND VOMITING
     Dosage: 100 MG, 2X/DAY
     Route: 048
  8. GABAPENTIN. [Concomitant]
     Active Substance: GABAPENTIN
     Indication: NEURALGIA
     Dosage: 100 MG, 3X/DAY [1 CAP TWICE A DAY FOR 2 DAYS THEN INCREASE TO 1 CAPSULE THREE TIMES A DAY]
  9. XALKORI [Suspect]
     Active Substance: CRIZOTINIB
     Dosage: 250 MG, 2X/DAY
     Route: 048
  10. COUMADIN [Concomitant]
     Active Substance: WARFARIN SODIUM
     Indication: THROMBOSIS
     Dosage: UNK
  11. HYDROCODONE/ACETAMINOPHEN [Concomitant]
     Active Substance: ACETAMINOPHEN\HYDROCODONE
     Dosage: ACETAMINOPHEN 325 MG-HYDROCODONE 5 MG, AS NEEDED[Q 6 H PRN P]
     Route: 048
  12. ZOLPIDEM TARTRATE. [Concomitant]
     Active Substance: ZOLPIDEM TARTRATE
     Dosage: 0.5 DF, 1X/DAY (NIGHTLY)
  13. XALKORI [Suspect]
     Active Substance: CRIZOTINIB
     Indication: NON-SMALL CELL LUNG CANCER STAGE IV
     Dosage: 250 MG, 2X/DAY
     Route: 048
     Dates: start: 20170410
  14. DRONABINOL. [Concomitant]
     Active Substance: DRONABINOL
     Dosage: 2.5 MG, UNK
  15. XALKORI [Suspect]
     Active Substance: CRIZOTINIB
     Dosage: 250 MG, 2X/DAY
     Route: 048
  16. OXYCODONE [Concomitant]
     Active Substance: OXYCODONE
     Dosage: 10 MG, UNK
  17. WARFARIN SODIUM. [Concomitant]
     Active Substance: WARFARIN SODIUM
     Dosage: 2.5 MG, ALTERNATE DAY[0.50 TABLET]
     Route: 048

REACTIONS (9)
  - Fall [Unknown]
  - Facial pain [Unknown]
  - Diarrhoea [Recovered/Resolved]
  - Eye contusion [Unknown]
  - Weight decreased [Recovered/Resolved]
  - Feeding disorder [Unknown]
  - Vomiting [Recovered/Resolved]
  - Dizziness [Unknown]
  - Balance disorder [Unknown]

NARRATIVE: CASE EVENT DATE: 20170410
